FAERS Safety Report 25860244 (Version 1)
Quarter: 2025Q3

REPORT INFORMATION
  Report Type: Spontaneous
  Country: US (occurrence: US)
  Receive Date: 20250929
  Receipt Date: 20250929
  Transmission Date: 20251020
  Serious: Yes (Other)
  Sender: AMGEN
  Company Number: US-AMGEN-USASP2025190966

PATIENT

DRUGS (2)
  1. BEVACIZUMAB [Suspect]
     Active Substance: BEVACIZUMAB
     Indication: Retinopathy of prematurity
  2. BEVACIZUMAB [Suspect]
     Active Substance: BEVACIZUMAB

REACTIONS (11)
  - Delayed visual maturation [Unknown]
  - Optic atrophy [Unknown]
  - Cortical visual impairment [Unknown]
  - Pathologic myopia [Unknown]
  - Gaze palsy [Unknown]
  - Drug effective for unapproved indication [Unknown]
  - Strabismus [Unknown]
  - Nystagmus [Unknown]
  - Anisometropia [Unknown]
  - Neurodevelopmental disorder [Unknown]
  - Off label use [Unknown]
